FAERS Safety Report 13010189 (Version 1)
Quarter: 2016Q4

REPORT INFORMATION
  Report Type: Spontaneous
  Country: US (occurrence: US)
  Receive Date: 20161206
  Receipt Date: 20161206
  Transmission Date: 20170207
  Serious: Yes (Hospitalization)
  Sender: FDA-Public Use
  Company Number: None

PATIENT
  Age: 16 Year
  Sex: Female

DRUGS (11)
  1. ORKAMBI [Suspect]
     Active Substance: IVACAFTOR\LUMACAFTOR
     Indication: CYSTIC FIBROSIS
     Route: 048
     Dates: start: 20150825
  2. SINGULAIR [Concomitant]
     Active Substance: MONTELUKAST SODIUM
  3. ALLERGY RELIF [Concomitant]
  4. ACID REDUCER [Concomitant]
  5. TOBI PODHALER [Suspect]
     Active Substance: TOBRAMYCIN
     Dates: start: 20140327
  6. LORATADINE. [Concomitant]
     Active Substance: LORATADINE
  7. PULMOZYME [Concomitant]
     Active Substance: DORNASE ALFA
  8. OMERPAZOLE [Concomitant]
  9. CREON [Concomitant]
     Active Substance: PANCRELIPASE AMYLASE\PANCRELIPASE LIPASE\PANCRELIPASE PROTEASE
  10. PREDNISONE. [Concomitant]
     Active Substance: PREDNISONE
  11. ADVAIR HFA [Concomitant]
     Active Substance: FLUTICASONE PROPIONATE\SALMETEROL XINAFOATE

REACTIONS (1)
  - Drug dose omission [None]
